FAERS Safety Report 8252787-8 (Version None)
Quarter: 2012Q2

REPORT INFORMATION
  Report Type: 
  Country: None (occurrence: None)
  Receive Date: 20120402
  Receipt Date: 20110412
  Transmission Date: 20120825
  Serious: No
  Sender: FDA-Public Use
  Company Number: US-ABBOTT-11P-163-0804427-00

PATIENT
  Sex: Male

DRUGS (2)
  1. OLMESARTAN MEDOXOMIL [Concomitant]
     Indication: PRODUCT USED FOR UNKNOWN INDICATION
     Dosage: DAILY DOSE:  UNKNOWN
     Route: 065
  2. TESTOSTERONE [Suspect]
     Indication: PRODUCT USED FOR UNKNOWN INDICATION
     Dosage: DAILY DOSE: 5 GRAM(S), PACKETS, 5 0F 5 GRAMS/DAY-25 GRAMS/DAY FOR THE LAST FOUR DAYS
     Route: 062
     Dates: start: 20110407

REACTIONS (3)
  - OVERDOSE [None]
  - INSOMNIA [None]
  - DRUG DISPENSING ERROR [None]
